FAERS Safety Report 16921192 (Version 1)
Quarter: 2019Q4

REPORT INFORMATION
  Report Type: Spontaneous
  Country: CN (occurrence: CN)
  Receive Date: 20191015
  Receipt Date: 20191015
  Transmission Date: 20200122
  Serious: Yes (Other)
  Sender: FDA-Public Use
  Company Number: CN-NAPPMUNDI-GBR-2019-0071032

PATIENT
  Age: 86 Year
  Sex: Male
  Weight: 39 kg

DRUGS (2)
  1. MS CONTIN [Suspect]
     Active Substance: MORPHINE SULFATE
     Indication: ABDOMINAL PAIN
     Dosage: 30 MG, DAILY
     Route: 048
     Dates: start: 20190828, end: 20190828
  2. MS CONTIN [Suspect]
     Active Substance: MORPHINE SULFATE
     Dosage: 30 MG, DAILY
     Route: 048
     Dates: start: 20190827, end: 20190827

REACTIONS (4)
  - Confusional state [Recovered/Resolved]
  - Unresponsive to stimuli [Recovered/Resolved]
  - Indifference [Recovered/Resolved]
  - Somnolence [Recovered/Resolved]

NARRATIVE: CASE EVENT DATE: 20190828
